FAERS Safety Report 14818404 (Version 1)
Quarter: 2018Q2

REPORT INFORMATION
  Report Type: Spontaneous
  Country: US (occurrence: US)
  Receive Date: 20180427
  Receipt Date: 20180427
  Transmission Date: 20180711
  Serious: No
  Sender: FDA-Public Use
  Company Number: US-CELGENEUS-USA-20180407926

PATIENT

DRUGS (1)
  1. ABRAXANE [Suspect]
     Active Substance: PACLITAXEL
     Indication: PRODUCT USED FOR UNKNOWN INDICATION
     Dosage: 100 MG IN 20 ML
     Route: 041

REACTIONS (3)
  - Adverse drug reaction [Unknown]
  - Drug ineffective [Unknown]
  - Loss of personal independence in daily activities [Unknown]
